FAERS Safety Report 9072400 (Version 1)
Quarter: 2013Q1

REPORT INFORMATION
  Report Type: Spontaneous
  Country: GB (occurrence: GB)
  Receive Date: 20130207
  Receipt Date: 20130207
  Transmission Date: 20140127
  Serious: Yes (Other)
  Sender: FDA-Public Use
  Company Number: GB-PFIZER INC-2013048050

PATIENT
  Age: 45 Year
  Sex: Male
  Weight: 129 kg

DRUGS (4)
  1. FRAGMIN [Suspect]
  2. ESCITALOPRAM [Concomitant]
     Dates: start: 20121012
  3. MOMETASONE FUROATE [Concomitant]
     Dates: start: 20121012
  4. ZYPREXA [Concomitant]
     Dates: start: 20121012

REACTIONS (4)
  - Muscle spasms [Unknown]
  - Paraesthesia [Unknown]
  - Abdominal pain upper [Unknown]
  - Hyperhidrosis [Unknown]
